FAERS Safety Report 7043315 (Version 4)
Quarter: 2013Q2

REPORT INFORMATION
  Report Type: Spontaneous
  Country: US (occurrence: US)
  Receive Date: 20090707
  Receipt Date: 20130521
  Transmission Date: 20140414
  Serious: Yes (Hospitalization, Other)
  Sender: FDA-Public Use
  Company Number: US-ROCHE-621712

PATIENT
  Age: 24 Year
  Sex: Male

DRUGS (3)
  1. ACCUTANE [Suspect]
     Indication: ACNE
     Dosage: THE PATIENT HAD PRESCRIPTION ON 24 OCT 2000 BUT HE STARTED ON 08 FEB 2001, 40 MG DAILY.
     Route: 065
     Dates: start: 20010208, end: 20010418
  2. ACCUTANE [Suspect]
     Route: 065
     Dates: start: 20010426, end: 20010622
  3. ACCUTANE [Suspect]
     Route: 065
     Dates: start: 20010622, end: 200107

REACTIONS (10)
  - Colitis ulcerative [Unknown]
  - Inflammatory bowel disease [Unknown]
  - Intestinal haemorrhage [Unknown]
  - Pelvic venous thrombosis [Unknown]
  - Crohn^s disease [Unknown]
  - Diarrhoea [Not Recovered/Not Resolved]
  - Rectal haemorrhage [Unknown]
  - Xerosis [Unknown]
  - Emotional distress [Not Recovered/Not Resolved]
  - Injury [Not Recovered/Not Resolved]
